FAERS Safety Report 5332595-8 (Version None)
Quarter: 2007Q2

REPORT INFORMATION
  Report Type: 
  Country: None (occurrence: None)
  Receive Date: 20070523
  Receipt Date: 20070516
  Transmission Date: 20071010
  Serious: Yes (Death)
  Sender: FDA-Public Use
  Company Number: GB-BOEHRINGER INGELHEIM PHARMACEUTICALS, INC.-2007-DE-02954GD

PATIENT
  Sex: Female

DRUGS (3)
  1. NEVIRAPINE [Suspect]
     Indication: HIV INFECTION
     Dates: start: 19990915, end: 19990926
  2. STAVUDINE [Concomitant]
     Indication: HIV INFECTION
  3. LAMIVUDINE [Concomitant]
     Indication: HIV INFECTION

REACTIONS (3)
  - HEPATIC FAILURE [None]
  - OESOPHAGEAL VARICES HAEMORRHAGE [None]
  - RASH [None]
